FAERS Safety Report 9512007 (Version 3)
Quarter: 2014Q1

REPORT INFORMATION
  Report Type: Report from Study
  Country: GB (occurrence: GB)
  Receive Date: 20130910
  Receipt Date: 20140116
  Transmission Date: 20141002
  Serious: Yes (Hospitalization)
  Sender: FDA-Public Use
  Company Number: PHHO2013GB009879

PATIENT
  Age: 55 Year
  Sex: Female
  Weight: 56 kg

DRUGS (17)
  1. DICLOFENAC [Suspect]
     Dosage: 50 MG, TID
     Dates: start: 20130711, end: 20130719
  2. AFINITOR [Suspect]
     Indication: BREAST CANCER METASTATIC
     Dosage: 10 MG, QD
     Route: 048
     Dates: start: 20130307, end: 20130710
  3. COMPARATOR EXEMESTANE [Suspect]
     Indication: BREAST CANCER METASTATIC
     Dosage: 25 MG, QD
     Route: 048
     Dates: start: 20130307, end: 20130710
  4. DEXAMETHASONE [Suspect]
     Dosage: 4 MG, QD
     Dates: start: 20130711, end: 20130719
  5. FENTANYL [Concomitant]
     Indication: ANALGESIC THERAPY
     Dosage: 25 UG/HR, T 72H
     Dates: start: 20130607
  6. FENTANYL [Concomitant]
     Dosage: 37 UG/HR, T 72H
     Dates: start: 20130723
  7. PARACETAMOL [Concomitant]
     Indication: ANALGESIC THERAPY
     Dosage: 50 MG, QD
     Route: 048
     Dates: start: 20130513
  8. PARACETAMOL [Concomitant]
     Dosage: 1 G, QD
     Route: 048
     Dates: start: 20130719
  9. VOLTAROL [Concomitant]
     Indication: ANALGESIC THERAPY
     Dosage: 50 MG, TID
     Route: 048
  10. CYCLIZINE [Concomitant]
     Indication: ANTIEMETIC SUPPORTIVE CARE
     Dosage: 50 MG, TID (PRN)
     Route: 048
     Dates: start: 20130313
  11. ORAMORPH [Concomitant]
     Indication: ANALGESIC THERAPY
     Dosage: 10 MG, 4WLY, PRN
     Dates: start: 20130313
  12. EXEMESTANE [Concomitant]
     Dosage: 25 MG, QD
     Route: 048
     Dates: start: 201203
  13. OMEPRAZOLE [Concomitant]
     Indication: PROPHYLAXIS
     Dosage: 10 MG, QD
     Route: 048
     Dates: start: 20130605
  14. OMEPRAZOLE [Concomitant]
     Dosage: 20 MG, QD AND 40 MG IV BID
     Dates: start: 20130719
  15. PREGABALIN [Concomitant]
     Indication: NEURALGIA
     Dosage: 25 MG, BID
     Route: 048
     Dates: start: 20130717
  16. PREGABALIN [Concomitant]
     Dosage: 75 MG, QD
     Route: 048
     Dates: start: 20130719
  17. ZOPICLONE [Concomitant]
     Indication: INSOMNIA
     Dosage: 3.75 MG, T-TT ON
     Route: 048
     Dates: start: 20130408

REACTIONS (2)
  - Gastric ulcer [Recovering/Resolving]
  - Colitis [Not Recovered/Not Resolved]
